FAERS Safety Report 5425245-3 (Version None)
Quarter: 2007Q3

REPORT INFORMATION
  Report Type: 
  Country: None (occurrence: None)
  Receive Date: 20070824
  Receipt Date: 20070816
  Transmission Date: 20080115
  Serious: Yes (Other)
  Sender: FDA-Public Use
  Company Number: US-PFIZER INC-2007022166

PATIENT
  Sex: Female

DRUGS (2)
  1. EXUBERA [Suspect]
     Indication: TYPE 2 DIABETES MELLITUS
     Route: 055
     Dates: start: 20070201, end: 20070401
  2. LIPITOR [Suspect]

REACTIONS (2)
  - ASTHENIA [None]
  - PRESYNCOPE [None]
